FAERS Safety Report 7593745-6 (Version None)
Quarter: 2011Q3

REPORT INFORMATION
  Report Type: 
  Country: None (occurrence: None)
  Receive Date: 20110706
  Receipt Date: 20110624
  Transmission Date: 20111222
  Serious: Yes (Other)
  Sender: FDA-Public Use
  Company Number: PHHY2011JP58641

PATIENT
  Age: 44 Year
  Sex: Female

DRUGS (2)
  1. LOXOPROFEN [Concomitant]
     Dosage: UNK UKN, UNK
  2. DICLOFENAC SODIUM [Suspect]
     Dosage: UNK UKN, UNK
     Route: 048

REACTIONS (1)
  - HYPOTHYROIDISM [None]
